FAERS Safety Report 11115439 (Version 1)
Quarter: 2015Q2

REPORT INFORMATION
  Report Type: Spontaneous
  Country: US (occurrence: None)
  Receive Date: 20150513
  Receipt Date: 20150513
  Transmission Date: 20150821
  Serious: Yes (Hospitalization)
  Sender: FDA-Public Use
  Company Number: 1713747-2015-9991118

PATIENT
  Age: 40 Year
  Sex: Female
  Weight: 89.81 kg

DRUGS (1)
  1. DELFLEX [Suspect]
     Active Substance: CALCIUM CHLORIDE\DEXTROSE MONOHYDRATE\MAGNESIUM CHLORIDE\SODIUM CHLORIDE\SODIUM LACTATE
     Indication: PERITONEAL DIALYSIS
     Dosage: DAILY/IP
     Route: 033

REACTIONS (2)
  - Urinary tract infection [None]
  - Hypotension [None]

NARRATIVE: CASE EVENT DATE: 20150312
